FAERS Safety Report 12452570 (Version 2)
Quarter: 2016Q2

REPORT INFORMATION
  Report Type: Spontaneous
  Country: CN (occurrence: CN)
  Receive Date: 20160609
  Receipt Date: 20160621
  Transmission Date: 20160815
  Serious: Yes (Other)
  Sender: FDA-Public Use
  Company Number: CN-SA-2016SA105914

PATIENT
  Age: 68 Year
  Sex: Male
  Weight: 55 kg

DRUGS (3)
  1. PLAVIX [Suspect]
     Active Substance: CLOPIDOGREL BISULFATE
     Indication: ARTERIOSCLEROSIS CORONARY ARTERY
     Route: 048
     Dates: start: 201408, end: 201502
  2. BISOPROLOL FUMARATE. [Concomitant]
     Active Substance: BISOPROLOL FUMARATE
     Route: 048
     Dates: start: 201408
  3. PLAVIX [Suspect]
     Active Substance: CLOPIDOGREL BISULFATE
     Indication: ARTERIOSCLEROSIS CORONARY ARTERY
     Route: 048
     Dates: start: 201502, end: 201604

REACTIONS (1)
  - Thrombocytopenia [Recovered/Resolved]

NARRATIVE: CASE EVENT DATE: 20150208
